FAERS Safety Report 8398901-5 (Version None)
Quarter: 2012Q2

REPORT INFORMATION
  Report Type: 
  Country: None (occurrence: None)
  Receive Date: 20120531
  Receipt Date: 20120530
  Transmission Date: 20120825
  Serious: Yes (Hospitalization, Other)
  Sender: FDA-Public Use
  Company Number: US-BAYER-2012-044973

PATIENT
  Age: 70 Year
  Sex: Female
  Weight: 165 kg

DRUGS (14)
  1. BETASERON [Suspect]
     Indication: RELAPSING-REMITTING MULTIPLE SCLEROSIS
     Dosage: 8 MIU, QOD
     Route: 058
     Dates: start: 19951213
  2. VITAMIN E [Concomitant]
     Dosage: 400 IU, QD
     Route: 048
  3. MULTI-VITAMIN [Concomitant]
     Dosage: 1 DF, QD
     Route: 048
  4. PLAVIX [Concomitant]
  5. CALCIUM +VIT D [Concomitant]
     Dosage: 600 IU, QD
     Route: 048
  6. ASPIRIN [Concomitant]
     Dosage: 81 MG, QD
     Route: 048
  7. METOPROLOL TARTRATE [Concomitant]
     Dosage: 25 MG, QD
     Route: 048
  8. DETROL [Concomitant]
     Dosage: 2 MG, QD
     Route: 048
  9. ACTONEL [Concomitant]
     Dosage: 150 MG, Q1MON
     Route: 048
  10. BENICAR [Concomitant]
     Dosage: 10 MG, QD
     Route: 048
  11. ACETAMINOPHEN [Concomitant]
     Dosage: 500 MG, BID
     Route: 048
  12. BETASERON [Suspect]
     Dosage: 0.3 MG, QOD
     Route: 058
  13. LIPITOR [Concomitant]
     Dosage: 20 MG, QD
     Route: 048
  14. FERROUS SULFATE TAB [Concomitant]
     Dosage: UNK UNK, QD
     Route: 048

REACTIONS (3)
  - ANGINA UNSTABLE [None]
  - MYOCARDIAL INFARCTION [None]
  - CHEST PAIN [None]
